FAERS Safety Report 9466978 (Version 1)
Quarter: 2013Q3

REPORT INFORMATION
  Report Type: Spontaneous
  Country: US (occurrence: US)
  Receive Date: 20130820
  Receipt Date: 20130820
  Transmission Date: 20140515
  Serious: No
  Sender: FDA-Public Use
  Company Number: US-TEVA-427157USA

PATIENT
  Age: 47 Year
  Sex: Female
  Weight: 47.67 kg

DRUGS (2)
  1. PARAGARD 380A [Suspect]
     Indication: CONTRACEPTION
     Route: 015
     Dates: start: 20130122
  2. PROVENTIL [Concomitant]
     Indication: ASTHMA

REACTIONS (4)
  - Menorrhagia [Recovered/Resolved]
  - Polymenorrhoea [Recovered/Resolved]
  - Menstruation delayed [Not Recovered/Not Resolved]
  - Vaginal discharge [Not Recovered/Not Resolved]
